FAERS Safety Report 5400055-1 (Version None)
Quarter: 2007Q3

REPORT INFORMATION
  Report Type: 
  Country: None (occurrence: None)
  Receive Date: 20070726
  Receipt Date: 20070726
  Transmission Date: 20080115
  Serious: Yes (Life-Threatening, Hospitalization)
  Sender: FDA-Public Use
  Company Number: None

PATIENT
  Sex: Female
  Weight: 81.6475 kg

DRUGS (1)
  1. GEODON [Suspect]
     Indication: BIPOLAR DISORDER
     Dosage: 80 MG  DAILY  PO
     Route: 048
     Dates: start: 20061201, end: 20070714

REACTIONS (4)
  - COLITIS [None]
  - DEHYDRATION [None]
  - ELECTROCARDIOGRAM QT PROLONGED [None]
  - ELECTROLYTE IMBALANCE [None]
